FAERS Safety Report 8294068-2 (Version None)
Quarter: 2012Q2

REPORT INFORMATION
  Report Type: 
  Country: None (occurrence: None)
  Receive Date: 20120418
  Receipt Date: 20120410
  Transmission Date: 20120825
  Serious: Yes (Hospitalization, Other)
  Sender: FDA-Public Use
  Company Number: US-BAYER-2011-037869

PATIENT
  Age: 15 Year
  Sex: Female
  Weight: 94.331 kg

DRUGS (2)
  1. ZANTAC [Concomitant]
  2. YAZ [Suspect]
     Dosage: UNK
     Dates: start: 20090301, end: 20090801

REACTIONS (7)
  - CHOLELITHIASIS [None]
  - PANCREATITIS [None]
  - MENTAL DISORDER [None]
  - ANXIETY [None]
  - ANHEDONIA [None]
  - PAIN [None]
  - CHOLECYSTITIS CHRONIC [None]
